FAERS Safety Report 9424168 (Version 1)
Quarter: 2013Q3

REPORT INFORMATION
  Report Type: Spontaneous
  Country: DE (occurrence: DE)
  Receive Date: 20130729
  Receipt Date: 20130729
  Transmission Date: 20140515
  Serious: Yes (Congenital Anomaly)
  Sender: FDA-Public Use
  Company Number: GXKR2013DE002479

PATIENT
  Sex: 0

DRUGS (6)
  1. RAMIPRIL [Suspect]
     Dosage: GESTATIONAL WEEK 0 TO 8
     Route: 064
  2. PRAVASTATIN [Suspect]
     Dosage: GESTATIONAL WEEK 0 TO 8
     Route: 064
  3. CLOPIDOGREL [Suspect]
     Dosage: MATERNAL DOSE 1X75 [MG/D ] (GESTATIONAL WEEK 0 TO 8)
     Route: 064
  4. NEPRESOL [Concomitant]
     Dosage: FROM GW 8.1 PROBABLY UNTIL DELIVERY
     Route: 064
  5. METOPROLOL [Concomitant]
     Indication: HYPERTENSION
     Dosage: FROM GW 8.1 PROBABLY UNTIL DELIVERY
     Route: 064
  6. ACETYLSALICYLIC ACID [Concomitant]
     Dosage: MATERNAL DOSE: 1X100 [MG/D ] (LONG-TERM EXPOSURE)
     Route: 064

REACTIONS (5)
  - Aorta hypoplasia [Recovered/Resolved with Sequelae]
  - Aortic valve stenosis [Recovered/Resolved with Sequelae]
  - Coarctation of the aorta [Recovered/Resolved with Sequelae]
  - Mitral valve hypoplasia [Recovered/Resolved with Sequelae]
  - Atrial septal defect [Recovered/Resolved with Sequelae]
